FAERS Safety Report 10687980 (Version 1)
Quarter: 2014Q4

REPORT INFORMATION
  Report Type: Spontaneous
  Country: US (occurrence: None)
  Receive Date: 20141231
  Receipt Date: 20141231
  Transmission Date: 20150529
  Serious: No
  Sender: FDA-Public Use
  Company Number: None

PATIENT
  Age: 51 Year
  Sex: Male
  Weight: 109.1 kg

DRUGS (2)
  1. ACETAZOLAMIDE. [Suspect]
     Active Substance: ACETAZOLAMIDE
     Indication: BENIGN INTRACRANIAL HYPERTENSION
     Dosage: 500 MG  BID  PO
     Route: 048
     Dates: start: 20070407, end: 20141112
  2. MINOCYCLINE [Suspect]
     Active Substance: MINOCYCLINE\MINOCYCLINE HYDROCHLORIDE
     Indication: HIDRADENITIS
     Dosage: 100 MG  AT BEDTIME  PO
     Route: 048
     Dates: start: 20141020, end: 20141208

REACTIONS (4)
  - Urticaria [None]
  - Swelling face [None]
  - Eyelid oedema [None]
  - Peripheral swelling [None]

NARRATIVE: CASE EVENT DATE: 20141112
